FAERS Safety Report 5214645-2 (Version None)
Quarter: 2007Q1

REPORT INFORMATION
  Report Type: 
  Country: None (occurrence: None)
  Receive Date: 20070117
  Receipt Date: 20070109
  Transmission Date: 20070707
  Serious: Yes (Hospitalization)
  Sender: FDA-Public Use
  Company Number: TCI2007A00126

PATIENT
  Age: 80 Year
  Sex: Female

DRUGS (2)
  1. ACTOS [Suspect]
     Indication: DIABETES MELLITUS
     Dosage: 15 MG (15 MG, 1 D) PER ORAL
     Route: 048
     Dates: start: 20061211, end: 20061227
  2. BASEN OD TABLETS 0.3 (VOGLIBOSE) [Concomitant]

REACTIONS (2)
  - PLEURAL EFFUSION [None]
  - RESPIRATORY FAILURE [None]
